FAERS Safety Report 21407897 (Version 1)
Quarter: 2022Q4

REPORT INFORMATION
  Report Type: Spontaneous
  Country: FR (occurrence: None)
  Receive Date: 20221004
  Receipt Date: 20221004
  Transmission Date: 20230112
  Serious: Yes (Other)
  Sender: FDA-Public Use
  Company Number: 2022A334993

PATIENT
  Sex: Female

DRUGS (1)
  1. TAGRISSO [Suspect]
     Active Substance: OSIMERTINIB
     Indication: Lymphoma
     Route: 048
     Dates: start: 20220728

REACTIONS (3)
  - Red blood cell abnormality [Not Recovered/Not Resolved]
  - Fatigue [Unknown]
  - Asthenia [Unknown]
